FAERS Safety Report 7132721-4 (Version None)
Quarter: 2010Q4

REPORT INFORMATION
  Report Type: 
  Country: None (occurrence: None)
  Receive Date: 20101117
  Receipt Date: 20101109
  Transmission Date: 20110411
  Serious: Yes (Other)
  Sender: FDA-Public Use
  Company Number: 2010MA004364

PATIENT
  Sex: Male

DRUGS (1)
  1. RISPERIDONE [Suspect]
     Dosage: PO
     Route: 048

REACTIONS (5)
  - GANGRENE [None]
  - PAINFUL ERECTION [None]
  - PENILE NECROSIS [None]
  - PENIS DISORDER [None]
  - PRIAPISM [None]
